FAERS Safety Report 23279083 (Version 1)
Quarter: 2023Q4

REPORT INFORMATION
  Report Type: Spontaneous
  Country: None (occurrence: US)
  Receive Date: 20231209
  Receipt Date: 20231209
  Transmission Date: 20240109
  Serious: No
  Sender: FDA-Public Use
  Company Number: US-Breckenridge Pharmaceutical, Inc.-2149159

PATIENT
  Age: 75 Year
  Sex: Male
  Weight: 93.182 kg

DRUGS (1)
  1. RIVASTIGMINE TRANSDERMAL SYSTEM [Suspect]
     Active Substance: RIVASTIGMINE
     Indication: Memory impairment
     Route: 062

REACTIONS (3)
  - Rash [Unknown]
  - Dermatitis contact [Unknown]
  - Rash pruritic [Unknown]
